FAERS Safety Report 13731223 (Version 1)
Quarter: 2017Q3

REPORT INFORMATION
  Report Type: Spontaneous
  Country: TR (occurrence: TR)
  Receive Date: 20170707
  Receipt Date: 20170707
  Transmission Date: 20171127
  Serious: Yes (Hospitalization, Other)
  Sender: FDA-Public Use
  Company Number: TR-TOLMAR, INC.-2017TR008792

PATIENT
  Age: 24 Year
  Sex: Female

DRUGS (2)
  1. ELIGARD [Suspect]
     Active Substance: LEUPROLIDE ACETATE
     Indication: OVULATION INDUCTION
     Dosage: UNK
     Route: 065
  2. GONAL-F [Concomitant]
     Active Substance: FOLLITROPIN

REACTIONS (5)
  - Exposure during pregnancy [Unknown]
  - Ovarian hyperstimulation syndrome [Recovering/Resolving]
  - Anembryonic gestation [Unknown]
  - Off label use [Unknown]
  - Cholestasis [Recovered/Resolved]
